FAERS Safety Report 16198840 (Version 2)
Quarter: 2019Q2

REPORT INFORMATION
  Report Type: Report from Study
  Country: CA (occurrence: CA)
  Receive Date: 20190415
  Receipt Date: 20190520
  Transmission Date: 20190711
  Serious: Yes (Hospitalization, Other)
  Sender: FDA-Public Use
  Company Number: CA-JNJFOC-20181214154

PATIENT
  Age: 73 Year
  Sex: Male
  Weight: 75.5 kg

DRUGS (1)
  1. REMICADE [Suspect]
     Active Substance: INFLIXIMAB
     Indication: COLITIS ULCERATIVE
     Dosage: ALSO REPORTED AS 600 MG
     Route: 042
     Dates: start: 20150921, end: 20190305

REACTIONS (6)
  - Pancreatic carcinoma [Not Recovered/Not Resolved]
  - Colitis ulcerative [Not Recovered/Not Resolved]
  - Product use issue [Unknown]
  - Oesophageal spasm [Not Recovered/Not Resolved]
  - Cerebrovascular accident [Unknown]
  - Off label use [Unknown]

NARRATIVE: CASE EVENT DATE: 20150921
